FAERS Safety Report 7022727-8 (Version None)
Quarter: 2010Q3

REPORT INFORMATION
  Report Type: 
  Country: None (occurrence: None)
  Receive Date: 20100930
  Receipt Date: 20100924
  Transmission Date: 20110219
  Serious: Yes (Hospitalization)
  Sender: FDA-Public Use
  Company Number: A0866686A

PATIENT
  Age: 38 Year
  Sex: Male
  Weight: 70 kg

DRUGS (5)
  1. FLOLAN [Suspect]
     Indication: PULMONARY ARTERIAL HYPERTENSION
     Dosage: 16NGKM UNKNOWN
     Dates: start: 20100330
  2. TYLENOL W/ CODEINE [Suspect]
     Dosage: 2TAB THREE TIMES PER DAY
     Route: 048
  3. ASPIRIN [Concomitant]
     Dosage: 81MG PER DAY
     Route: 048
  4. ACETAMINOPHEN [Concomitant]
     Dosage: 325MG SEE DOSAGE TEXT
     Route: 048
  5. SIMVASTATIN [Concomitant]
     Dosage: 40MG AT NIGHT
     Route: 048

REACTIONS (7)
  - ABDOMINAL PAIN [None]
  - BACK PAIN [None]
  - BLOOD CREATININE INCREASED [None]
  - BLOOD UREA INCREASED [None]
  - CONSTIPATION [None]
  - DEHYDRATION [None]
  - PAIN IN EXTREMITY [None]
